FAERS Safety Report 25090726 (Version 1)
Quarter: 2025Q1

REPORT INFORMATION
  Report Type: Spontaneous
  Country: US (occurrence: US)
  Receive Date: 20250318
  Receipt Date: 20250318
  Transmission Date: 20250409
  Serious: No
  Sender: MYLAN
  Company Number: US-MYLANLABS-2025M1022653

PATIENT
  Age: 22 Year
  Sex: Male

DRUGS (1)
  1. EPINEPHRINE [Suspect]
     Active Substance: EPINEPHRINE
     Indication: Allergy to arthropod sting

REACTIONS (2)
  - Product colour issue [Unknown]
  - Product quality issue [Unknown]

NARRATIVE: CASE EVENT DATE: 20250306
